FAERS Safety Report 7476570-6 (Version None)
Quarter: 2011Q2

REPORT INFORMATION
  Report Type: 
  Country: None (occurrence: None)
  Receive Date: 20110512
  Receipt Date: 20110503
  Transmission Date: 20111010
  Serious: Yes (Hospitalization)
  Sender: FDA-Public Use
  Company Number: BR-ASTRAZENECA-2011SE25874

PATIENT
  Age: 79 Year
  Sex: Female

DRUGS (7)
  1. RAZAPINA [Concomitant]
  2. AMLODIPINE BESYLATE [Concomitant]
  3. ATENOLOL [Suspect]
     Indication: HYPERTENSION
     Route: 048
     Dates: start: 20010101
  4. OMEPRAZOLE [Concomitant]
  5. ASPIRIN [Concomitant]
  6. METFORMIN HYDROCHLORIDE [Concomitant]
  7. ENALAPRIL MALEATE [Concomitant]
     Indication: HYPERTENSION
     Route: 048

REACTIONS (8)
  - MEMORY IMPAIRMENT [None]
  - INSOMNIA [None]
  - BLOOD CHOLESTEROL INCREASED [None]
  - HYPOTHYROIDISM [None]
  - CORONARY REVASCULARISATION [None]
  - CARDIAC FAILURE [None]
  - FATIGUE [None]
  - HEART RATE DECREASED [None]
